FAERS Safety Report 6150666-3 (Version None)
Quarter: 2009Q2

REPORT INFORMATION
  Report Type: 
  Country: None (occurrence: None)
  Receive Date: 20090408
  Receipt Date: 20090408
  Transmission Date: 20091009
  Serious: No
  Sender: FDA-Public Use
  Company Number: None

PATIENT
  Age: 40 Year
  Sex: Male

DRUGS (2)
  1. CIPRO [Suspect]
     Indication: ANIMAL BITE
     Dosage: 400MG Q12H IV DRIP
     Route: 041
     Dates: start: 20090403, end: 20090404
  2. CIPRO [Suspect]
     Indication: CELLULITIS
     Dosage: 400MG Q12H IV DRIP
     Route: 041
     Dates: start: 20090403, end: 20090404

REACTIONS (7)
  - CHILLS [None]
  - FEELING COLD [None]
  - FLUSHING [None]
  - INFUSION SITE PAIN [None]
  - NAUSEA [None]
  - PALPITATIONS [None]
  - RESPIRATORY RATE INCREASED [None]
